FAERS Safety Report 7647680-5 (Version None)
Quarter: 2011Q3

REPORT INFORMATION
  Report Type: 
  Country: None (occurrence: None)
  Receive Date: 20110801
  Receipt Date: 20110801
  Transmission Date: 20111222
  Serious: Yes (Other)
  Sender: FDA-Public Use
  Company Number: None

PATIENT
  Age: 51 Year
  Sex: Male
  Weight: 96.615 kg

DRUGS (1)
  1. KRYSTEXXA [Suspect]
     Indication: GOUT
     Dosage: 8MG
     Route: 042
     Dates: start: 20110527, end: 20110722

REACTIONS (2)
  - BACK PAIN [None]
  - MUSCLE SPASMS [None]
